FAERS Safety Report 5474966-5 (Version None)
Quarter: 2007Q4

REPORT INFORMATION
  Report Type: 
  Country: None (occurrence: None)
  Receive Date: 20071002
  Receipt Date: 20070920
  Transmission Date: 20080405
  Serious: Yes (Hospitalization)
  Sender: FDA-Public Use
  Company Number: US-ROCHE-521761

PATIENT
  Age: 78 Year
  Sex: Female

DRUGS (13)
  1. DIAZEPAM [Suspect]
     Indication: SLEEP DISORDER
     Dosage: TAKEN AS NEEDED
     Route: 065
  2. METOPROLOL [Suspect]
     Route: 065
  3. DIGOXIN [Suspect]
     Indication: DRUG USE FOR UNKNOWN INDICATION
     Route: 065
  4. COUMADIN [Suspect]
     Route: 065
  5. FUROSEMIDE [Suspect]
     Route: 065
  6. ATORVASTATIN CALCIUM [Suspect]
     Route: 065
  7. ASPIRIN [Suspect]
     Dosage: DRUG NAME REPORTED AS BABY ASPIRIN
     Route: 065
  8. CELECOXIB [Suspect]
     Route: 065
  9. PAROXETINE HCL [Suspect]
     Route: 065
  10. LEVOFLOXACIN [Suspect]
     Route: 065
  11. IBUPROFEN [Suspect]
     Route: 065
  12. ANTACID TAB [Suspect]
     Route: 065
  13. OVER THE COUNTER COUGH SYRUP [Suspect]
     Indication: COUGH
     Route: 065

REACTIONS (2)
  - FALL [None]
  - GASTRIC ULCER HAEMORRHAGE [None]
